FAERS Safety Report 13158646 (Version 1)
Quarter: 2017Q1

REPORT INFORMATION
  Report Type: Spontaneous
  Country: US (occurrence: US)
  Receive Date: 20170127
  Receipt Date: 20170127
  Transmission Date: 20170428
  Serious: Yes (Hospitalization)
  Sender: FDA-Public Use
  Company Number: None

PATIENT
  Age: 25 Year
  Sex: Female
  Weight: 77.3 kg

DRUGS (12)
  1. OLANZAPINE. [Concomitant]
     Active Substance: OLANZAPINE
  2. ERTAPENEM [Concomitant]
     Active Substance: ERTAPENEM
  3. BRINCIDOFOVIR 100MG/ML, 85ML [Suspect]
     Active Substance: BRINCIDOFOVIR
     Indication: RESPIRATORY FAILURE
     Route: 048
     Dates: start: 20160402, end: 20160502
  4. FENTANYL. [Concomitant]
     Active Substance: FENTANYL
  5. ZOFRAN [Concomitant]
     Active Substance: ONDANSETRON HYDROCHLORIDE
  6. METHYLPREDNISOLONE. [Concomitant]
     Active Substance: METHYLPREDNISOLONE
  7. DAPSONE. [Concomitant]
     Active Substance: DAPSONE
  8. TRAMADOL. [Concomitant]
     Active Substance: TRAMADOL
  9. PANTOPRAZOLE [Concomitant]
     Active Substance: PANTOPRAZOLE SODIUM
  10. METHOTREXATE. [Concomitant]
     Active Substance: METHOTREXATE
  11. HYDRALAZINE [Concomitant]
     Active Substance: HYDRALAZINE HYDROCHLORIDE
  12. FAMOTIDINE. [Concomitant]
     Active Substance: FAMOTIDINE

REACTIONS (1)
  - Pancreatitis [None]

NARRATIVE: CASE EVENT DATE: 20160425
